FAERS Safety Report 12990961 (Version 1)
Quarter: 2016Q4

REPORT INFORMATION
  Report Type: Spontaneous
  Country: US (occurrence: US)
  Receive Date: 20161130
  Receipt Date: 20161130
  Transmission Date: 20170207
  Serious: Yes (Disabling)
  Sender: FDA-Public Use
  Company Number: None

PATIENT
  Age: 48 Year
  Sex: Female
  Weight: 64.8 kg

DRUGS (7)
  1. VITIMIN D [Concomitant]
  2. COLBETASOL [Concomitant]
  3. B6 [Concomitant]
     Active Substance: PYRIDOXINE HYDROCHLORIDE
  4. ZOLPIDEM [Concomitant]
     Active Substance: ZOLPIDEM\ZOLPIDEM TARTRATE
  5. MESALAMINE DELAYED RELEASE [Suspect]
     Active Substance: MESALAMINE
     Indication: COLITIS
     Dosage: ?          QUANTITY:2 TABLET(S);?
     Route: 048
     Dates: start: 20160907, end: 20161130
  6. DESONIDE. [Concomitant]
     Active Substance: DESONIDE
  7. VITIMIN B12 [Concomitant]

REACTIONS (5)
  - Product physical issue [None]
  - Dizziness [None]
  - Vertigo [None]
  - Product coating issue [None]
  - Product substitution issue [None]

NARRATIVE: CASE EVENT DATE: 20161003
